FAERS Safety Report 7384195-6 (Version None)
Quarter: 2011Q1

REPORT INFORMATION
  Report Type: 
  Country: None (occurrence: None)
  Receive Date: 20110330
  Receipt Date: 20110324
  Transmission Date: 20110831
  Serious: Yes (Other)
  Sender: FDA-Public Use
  Company Number: B0709440A

PATIENT
  Sex: Female

DRUGS (3)
  1. AUGMENTIN [Suspect]
     Indication: BRONCHITIS
     Dates: start: 20110226, end: 20110302
  2. CLARITROMICINA [Concomitant]
     Indication: BRONCHITIS
  3. BENTELAN [Concomitant]
     Indication: RASH

REACTIONS (2)
  - RASH GENERALISED [None]
  - PYREXIA [None]
